FAERS Safety Report 8620742-1 (Version None)
Quarter: 2012Q3

REPORT INFORMATION
  Report Type: 
  Country: None (occurrence: None)
  Receive Date: 20120824
  Receipt Date: 20120815
  Transmission Date: 20120928
  Serious: Yes (Other)
  Sender: FDA-Public Use
  Company Number: US-FRI-1000038060

PATIENT
  Age: 19 Year
  Sex: Male

DRUGS (4)
  1. CITALOPRAM HYDROBROMIDE [Suspect]
  2. LAMOTRIGINE [Suspect]
  3. LORAZEPAM [Suspect]
  4. ARIPIPRAZOLE [Suspect]

REACTIONS (3)
  - INTENTIONAL OVERDOSE [None]
  - SEROTONIN SYNDROME [None]
  - VENTRICULAR TACHYCARDIA [None]
